FAERS Safety Report 13951459 (Version 2)
Quarter: 2017Q3

REPORT INFORMATION
  Report Type: Spontaneous
  Country: BA (occurrence: BA)
  Receive Date: 20170908
  Receipt Date: 20170919
  Transmission Date: 20171128
  Serious: Yes (Death, Hospitalization, Other)
  Sender: FDA-Public Use
  Company Number: BA-PFIZER INC-2017385377

PATIENT
  Age: 68 Year
  Sex: Male

DRUGS (15)
  1. XANAX [Concomitant]
     Active Substance: ALPRAZOLAM
     Dosage: 1X1 TABLET
  2. NITROGLYCERIN. [Concomitant]
     Active Substance: NITROGLYCERIN
     Dosage: AS NEEDED
  3. MONIZOL /00310802/ [Concomitant]
     Dosage: 40 MG, 1X/DAY
  4. SUTENT [Suspect]
     Active Substance: SUNITINIB MALATE
     Indication: RENAL CANCER METASTATIC
     Dosage: 50 MG, CYCLIC (4/2 SCHEME)
     Dates: start: 200912
  5. SUTENT [Suspect]
     Active Substance: SUNITINIB MALATE
     Dosage: 37.5 MG, CYCLIC (4/2 SCHEME)
     Dates: start: 201701, end: 2017
  6. LORISTA H [Concomitant]
     Active Substance: HYDROCHLOROTHIAZIDE\LOSARTAN POTASSIUM
     Dosage: 0.5 DF, 2X/DAY
  7. TOREM /01036501/ [Concomitant]
     Active Substance: TORSEMIDE
     Dosage: 5 MG, DAILY
  8. SUTENT [Suspect]
     Active Substance: SUNITINIB MALATE
     Dosage: 25 MG, UNK
     Dates: start: 2017
  9. ASPIRIN PROTECT [Concomitant]
     Active Substance: ASPIRIN
     Dosage: 100 MG, 1X/DAY
  10. LERCANIL [Concomitant]
     Dosage: 10 MG, 1X/DAY
  11. SUTENT [Suspect]
     Active Substance: SUNITINIB MALATE
     Dosage: 37.5 MG, CYCLIC ( 4/2 SCHEME)
     Dates: start: 201112
  12. SUTENT [Suspect]
     Active Substance: SUNITINIB MALATE
     Dosage: 25 MG, CYCLIC (2/1 SCHEME)
     Dates: start: 201508, end: 201606
  13. LETROX [Concomitant]
     Active Substance: LEVOTHYROXINE SODIUM
     Dosage: 175 UG, DAILY
  14. CONCOR [Concomitant]
     Active Substance: BISOPROLOL FUMARATE
     Dosage: 2.5 MG, 1X/DAY
  15. STATEX /00848101/ [Concomitant]
     Dosage: 1X1 TABLET

REACTIONS (18)
  - Pneumonia [Recovered/Resolved]
  - Nephrotic syndrome [Recovered/Resolved]
  - Fatigue [Unknown]
  - Nausea [Unknown]
  - Death [Fatal]
  - Diarrhoea [Unknown]
  - Pleural effusion [Unknown]
  - Neutropenia [Recovered/Resolved]
  - Hypothyroidism [Unknown]
  - Blood uric acid increased [Unknown]
  - Neoplasm progression [Unknown]
  - Respiratory failure [Recovered/Resolved]
  - Urinary tract infection [Unknown]
  - Anaemia [Unknown]
  - Thrombocytopenia [Recovered/Resolved]
  - Cerebral infarction [Recovered/Resolved]
  - Asthenia [Unknown]
  - Blood lactate dehydrogenase increased [Unknown]

NARRATIVE: CASE EVENT DATE: 2010
